FAERS Safety Report 10007399 (Version 1)
Quarter: 2014Q1

REPORT INFORMATION
  Report Type: Spontaneous
  Country: US (occurrence: None)
  Receive Date: 20140312
  Receipt Date: 20140312
  Transmission Date: 20141002
  Serious: No
  Sender: FDA-Public Use
  Company Number: None

PATIENT
  Age: 51 Year
  Sex: Male
  Weight: 137 kg

DRUGS (1)
  1. ERBITUX [Suspect]
     Dosage: PATIENT WILL NOT RECIEVE DOSE 8 OF CETUXIMAB. DOSE 7 REDUCED DUE TO WEIGHT LOSS.

REACTIONS (9)
  - Dizziness [None]
  - Syncope [None]
  - Asthenia [None]
  - Electrolyte imbalance [None]
  - Heart rate increased [None]
  - Pulse abnormal [None]
  - Dyspnoea [None]
  - Abasia [None]
  - Blood pressure decreased [None]
